FAERS Safety Report 18393036 (Version 1)
Quarter: 2020Q4

REPORT INFORMATION
  Report Type: Spontaneous
  Country: DE (occurrence: CN)
  Receive Date: 20201016
  Receipt Date: 20201016
  Transmission Date: 20210114
  Serious: Yes (Other)
  Sender: FDA-Public Use
  Company Number: CN-STI PHARMA LLC-2092860

PATIENT
  Age: 31 Year
  Sex: Female
  Weight: 52 kg

DRUGS (2)
  1. ETHAMBUTOL HYDROCHLORIDE. [Suspect]
     Active Substance: ETHAMBUTOL HYDROCHLORIDE
  2. DELAMINID [Suspect]
     Active Substance: DELAMANID

REACTIONS (3)
  - Gastric dilatation [Unknown]
  - Nausea [Unknown]
  - Leukopenia [Unknown]

NARRATIVE: CASE EVENT DATE: 20200824
